FAERS Safety Report 15814222 (Version 2)
Quarter: 2019Q1

REPORT INFORMATION
  Report Type: Spontaneous
  Country: NO (occurrence: NO)
  Receive Date: 20190111
  Receipt Date: 20190111
  Transmission Date: 20190417
  Serious: Yes (Death)
  Sender: FDA-Public Use
  Company Number: PHHY2019NO004346

PATIENT
  Age: 66 Year
  Sex: Male

DRUGS (4)
  1. PREDNISOLONE. [Suspect]
     Active Substance: PREDNISOLONE
     Indication: ANTISYNTHETASE SYNDROME
     Dosage: 10 MG, UNK (GREATER THAN AND LESS THAN 10 MG)
     Route: 065
  2. RITUXIMAB. [Suspect]
     Active Substance: RITUXIMAB
     Indication: INTERSTITIAL LUNG DISEASE
  3. RITUXIMAB. [Suspect]
     Active Substance: RITUXIMAB
     Indication: ANTISYNTHETASE SYNDROME
     Dosage: 1000 MG, UNK
     Route: 042
  4. PREDNISOLONE. [Suspect]
     Active Substance: PREDNISOLONE
     Indication: INTERSTITIAL LUNG DISEASE

REACTIONS (3)
  - Infection [Fatal]
  - Off label use [Fatal]
  - Intentional product use issue [Fatal]
